FAERS Safety Report 7638215-1 (Version None)
Quarter: 2011Q3

REPORT INFORMATION
  Report Type: 
  Country: None (occurrence: None)
  Receive Date: 20110720
  Receipt Date: 20110708
  Transmission Date: 20111222
  Serious: Yes (Hospitalization)
  Sender: FDA-Public Use
  Company Number: 2011EK000016

PATIENT
  Age: 61 Year
  Sex: Female

DRUGS (2)
  1. ONDANSETRON [Concomitant]
  2. DEPODUR [Suspect]
     Indication: KNEE ARTHROPLASTY
     Dosage: 10 MG;X1;ED

REACTIONS (4)
  - HYPOXIA [None]
  - PRURITUS [None]
  - CONSTIPATION [None]
  - PLEURAL EFFUSION [None]
